FAERS Safety Report 8390203-6 (Version None)
Quarter: 2012Q2

REPORT INFORMATION
  Report Type: 
  Country: None (occurrence: None)
  Receive Date: 20120529
  Receipt Date: 20120521
  Transmission Date: 20120825
  Serious: Yes (Hospitalization)
  Sender: FDA-Public Use
  Company Number: FR-MILLENNIUM PHARMACEUTICALS, INC.-2012-00702

PATIENT

DRUGS (12)
  1. VELCADE [Suspect]
     Indication: MULTIPLE MYELOMA
     Dosage: 1.3 MG, UNK
     Route: 065
     Dates: start: 20111115, end: 20120106
  2. CLONAZEPAM [Concomitant]
     Dosage: UNK
     Route: 048
  3. MORPHINE SULFATE [Concomitant]
     Dosage: 2 MG, UNK
     Route: 048
  4. LEXOMIL [Concomitant]
  5. CELECTOL [Concomitant]
     Dosage: 200 MG, UNK
     Route: 048
  6. REVLIMID [Suspect]
     Indication: MULTIPLE MYELOMA
     Dosage: 25 MG, UNK
     Route: 065
     Dates: start: 20111115, end: 20120109
  7. DEXAMETHASONE [Suspect]
     Indication: MULTIPLE MYELOMA
     Dosage: 20 MG, UNK
     Route: 065
     Dates: start: 20111115, end: 20120107
  8. ALLOPURINOL [Concomitant]
     Dosage: 100 MG, UNK
     Route: 048
  9. RABEPRAZOLE SODIUM [Concomitant]
     Dosage: 20 MG, UNK
     Route: 048
  10. EZETIMIBE [Concomitant]
     Dosage: 10 MG, UNK
     Route: 048
  11. BACTRIM [Concomitant]
     Dosage: UNK
     Route: 048
     Dates: start: 20111103
  12. ZELITREX                           /01269701/ [Concomitant]
     Dosage: 500 MG, UNK
     Dates: start: 20111103

REACTIONS (1)
  - CYTOMEGALOVIRUS INFECTION [None]
